FAERS Safety Report 10011295 (Version 2)
Quarter: 2014Q4

REPORT INFORMATION
  Report Type: Spontaneous
  Country: FI (occurrence: FI)
  Receive Date: 20140314
  Receipt Date: 20141211
  Transmission Date: 20150528
  Serious: Yes (Hospitalization)
  Sender: FDA-Public Use
  Company Number: FI-JNJFOC-20140305718

PATIENT
  Age: 46 Year
  Sex: Male

DRUGS (12)
  1. LIPCUT [Concomitant]
     Active Substance: SIMVASTATIN
     Dosage: STRENGTH: 10 MG
     Route: 065
  2. BURANA [Concomitant]
     Active Substance: IBUPROFEN
     Dosage: AS NEEDED
     Route: 065
  3. REMICADE [Suspect]
     Active Substance: INFLIXIMAB
     Indication: ANKYLOSING SPONDYLITIS
     Route: 042
     Dates: start: 20120419
  4. METHOTREXATE [Concomitant]
     Active Substance: METHOTREXATE
     Route: 065
  5. PLENDIL [Concomitant]
     Active Substance: FELODIPINE
     Dosage: STRENGTH: 10 MG
     Route: 065
  6. REMICADE [Suspect]
     Active Substance: INFLIXIMAB
     Indication: ANKYLOSING SPONDYLITIS
     Route: 042
     Dates: start: 20131223
  7. CALCICHEW [Concomitant]
     Active Substance: CALCIUM CARBONATE
     Route: 065
  8. METFORMIN [Concomitant]
     Active Substance: METFORMIN HYDROCHLORIDE
     Route: 065
  9. ZOLT [Concomitant]
     Active Substance: LANSOPRAZOLE
     Route: 065
  10. LEVEMIR [Concomitant]
     Active Substance: INSULIN DETEMIR
     Route: 065
  11. DIFORMIN [Concomitant]
     Dosage: STRENGTH: 1G??DOSING FREQUENCY: ^2 PLUS1^
     Route: 065
  12. SIRDALUD [Concomitant]
     Active Substance: TIZANIDINE
     Dosage: STRENGTH: 6 MG
     Route: 065

REACTIONS (3)
  - Arthritis [Recovered/Resolved]
  - Drug effect decreased [Unknown]
  - Arthritis bacterial [Unknown]

NARRATIVE: CASE EVENT DATE: 201401
